FAERS Safety Report 11625633 (Version 1)
Quarter: 2015Q4

REPORT INFORMATION
  Report Type: Spontaneous
  Country: US (occurrence: US)
  Receive Date: 20151013
  Receipt Date: 20151013
  Transmission Date: 20160304
  Serious: No
  Sender: FDA-Public Use
  Company Number: US-MIKART, INC.-1042880

PATIENT
  Age: 24 Month
  Sex: Female

DRUGS (3)
  1. DEXTROAMPHETAMINE SULFATE. [Suspect]
     Active Substance: DEXTROAMPHETAMINE SULFATE
     Indication: ATTENTION DEFICIT/HYPERACTIVITY DISORDER
     Route: 048
     Dates: start: 20140722, end: 20140722
  2. BUPROPION HYDROCHLORIDE EXTENDED RELEASE (XL) [Concomitant]
     Active Substance: BUPROPION HYDROCHLORIDE
     Route: 048
  3. DEPLIN FOLATE [Concomitant]
     Dates: start: 20140104, end: 20141217

REACTIONS (2)
  - Depressed mood [Recovered/Resolved]
  - Fatigue [Recovered/Resolved]

NARRATIVE: CASE EVENT DATE: 20140722
